FAERS Safety Report 25393257 (Version 2)
Quarter: 2025Q3

REPORT INFORMATION
  Report Type: Spontaneous
  Country: US (occurrence: US)
  Receive Date: 20250604
  Receipt Date: 20250701
  Transmission Date: 20251020
  Serious: No
  Sender: GLAXOSMITHKLINE
  Company Number: US-GSKCCFUS-Case-02306478_AE-123855

PATIENT
  Sex: Female

DRUGS (1)
  1. BENLYSTA [Suspect]
     Active Substance: BELIMUMAB
     Indication: Product used for unknown indication

REACTIONS (9)
  - Oral disorder [Unknown]
  - Diarrhoea [Unknown]
  - Lip haemorrhage [Unknown]
  - Mouth haemorrhage [Unknown]
  - Gingival bleeding [Unknown]
  - Chapped lips [Unknown]
  - Feeding disorder [Unknown]
  - Palatal disorder [Unknown]
  - Tongue disorder [Unknown]
